FAERS Safety Report 7755502-7 (Version None)
Quarter: 2011Q3

REPORT INFORMATION
  Report Type: 
  Country: None (occurrence: None)
  Receive Date: 20110916
  Receipt Date: 20110912
  Transmission Date: 20111222
  Serious: Yes (Hospitalization, Other)
  Sender: FDA-Public Use
  Company Number: JP-PFIZER INC-2011113412

PATIENT
  Age: 59 Year
  Sex: Male
  Weight: 39 kg

DRUGS (16)
  1. LYRICA [Suspect]
     Indication: HYPOAESTHESIA
     Dosage: 75 MG, 2X/DAY
     Route: 048
     Dates: start: 20110428, end: 20110502
  2. DEPAS [Concomitant]
     Indication: INSOMNIA
     Dosage: 0.5 MG, 1X/DAY
     Route: 048
     Dates: start: 20110422
  3. CARVEDILOL [Concomitant]
     Indication: CARDIAC FAILURE
     Dosage: 10 MG, 1X/DAY
     Route: 048
     Dates: start: 20110422
  4. LYRICA [Suspect]
     Indication: NEUROPATHY PERIPHERAL
  5. ZOLPIDEM [Concomitant]
     Indication: INSOMNIA
     Dosage: 5 MG, 1X/DAY
     Route: 048
     Dates: start: 20110422
  6. DIART [Concomitant]
     Indication: CARDIAC FAILURE
     Dosage: 60 MG, 1X/DAY
     Route: 048
     Dates: start: 20110422
  7. CAMOSTAT MESILATE [Concomitant]
     Indication: PANCREATITIS CHRONIC
     Dosage: 100 MG, 3X/DAY
     Route: 048
     Dates: start: 20110422
  8. BEZAFIBRATE [Concomitant]
     Indication: HYPERLIPIDAEMIA
     Dosage: 200 MG, 2X/DAY
     Route: 048
     Dates: start: 20110422
  9. ROHYPNOL [Concomitant]
     Indication: INSOMNIA
     Dosage: 2 MG, 1X/DAY
     Route: 048
     Dates: start: 20110422
  10. ASPIRIN [Concomitant]
     Indication: ARTERIOSCLEROSIS OBLITERANS
     Dosage: 100 MG, 1X/DAY
     Route: 048
     Dates: start: 20110422
  11. URSO 250 [Concomitant]
     Indication: HEPATIC CIRRHOSIS
     Dosage: 100 MG, 3X/DAY
     Route: 048
     Dates: start: 20110422
  12. HERBAL EXTRACTS NOS [Concomitant]
     Indication: ANXIETY DISORDER
     Dosage: 2.5 MG, 2X/DAY
     Route: 048
     Dates: start: 20110422
  13. YOKUKAN-SAN [Concomitant]
     Indication: ANXIETY DISORDER
     Dosage: 2.5 MG, 2X/DAY
     Route: 048
     Dates: start: 20110422
  14. DEPROMEL [Concomitant]
     Indication: INSOMNIA
     Dosage: 100 MG, 1X/DAY
     Route: 048
     Dates: start: 20110422
  15. CILOSTAZOL [Concomitant]
     Indication: ARTERIOSCLEROSIS OBLITERANS
     Dosage: 100 MG, 2X/DAY
     Route: 048
     Dates: start: 20110422
  16. BERIZYM [Concomitant]
     Indication: PANCREATITIS CHRONIC
     Dosage: 1 G, 3X/DAY
     Route: 048
     Dates: start: 20110422

REACTIONS (3)
  - OSTEOMYELITIS [None]
  - SCROTAL OEDEMA [None]
  - OEDEMA PERIPHERAL [None]
